FAERS Safety Report 9594875 (Version 1)
Quarter: 2013Q4

REPORT INFORMATION
  Report Type: Spontaneous
  Country: US (occurrence: US)
  Receive Date: 20131004
  Receipt Date: 20131004
  Transmission Date: 20140711
  Serious: Yes (Hospitalization, Other)
  Sender: FDA-Public Use
  Company Number: US-ELI_LILLY_AND_COMPANY-US201309008779

PATIENT
  Age: 51 Year
  Sex: Male

DRUGS (2)
  1. HUMALOG LISPRO [Suspect]
     Indication: TYPE 1 DIABETES MELLITUS
     Dosage: 15 U, TID
     Dates: start: 2003
  2. LANTUS [Concomitant]

REACTIONS (3)
  - Cerebrovascular accident [Unknown]
  - Sleep apnoea syndrome [Not Recovered/Not Resolved]
  - Stress [Not Recovered/Not Resolved]
